FAERS Safety Report 10331062 (Version 2)
Quarter: 2014Q3

REPORT INFORMATION
  Report Type: Spontaneous
  Country: US (occurrence: US)
  Receive Date: 20140722
  Receipt Date: 20140915
  Transmission Date: 20150326
  Serious: Yes (Disabling)
  Sender: FDA-Public Use
  Company Number: US-PFIZER INC-2014200559

PATIENT
  Age: 57 Year
  Sex: Female
  Weight: 68.03 kg

DRUGS (3)
  1. LYRICA [Suspect]
     Active Substance: PREGABALIN
     Indication: PAIN
  2. ULTRAM [Concomitant]
     Active Substance: TRAMADOL HYDROCHLORIDE
     Indication: PAIN
     Dosage: 50 MG, 2X/DAY
  3. LYRICA [Suspect]
     Active Substance: PREGABALIN
     Indication: NEUROPATHY PERIPHERAL
     Dosage: 100 MG, 2X/DAY
     Route: 048
     Dates: start: 2011, end: 201403

REACTIONS (6)
  - Fall [Unknown]
  - Bone pain [Unknown]
  - Hand fracture [Unknown]
  - Ligament sprain [Unknown]
  - Pain [Unknown]
  - Ankle fracture [Unknown]

NARRATIVE: CASE EVENT DATE: 2014
